FAERS Safety Report 4700576-0 (Version None)
Quarter: 2005Q2

REPORT INFORMATION
  Report Type: 
  Country: None (occurrence: None)
  Receive Date: 20050627
  Receipt Date: 20050529
  Transmission Date: 20051028
  Serious: Yes (Hospitalization, Other)
  Sender: FDA-Public Use
  Company Number: IL-NOVOPROD-244506

PATIENT
  Age: 30 Year
  Sex: Male
  Weight: 62 kg

DRUGS (11)
  1. NOVOSEVEN [Suspect]
     Indication: HAEMORRHAGE
     Dosage: 77.4 UG/KG, SINGLE
     Route: 042
     Dates: start: 20050507
  2. KETALAR [Concomitant]
     Indication: ANAESTHESIA
     Dates: start: 20050507
  3. FENTANYL [Concomitant]
     Indication: ANAESTHESIA
     Dates: start: 20050507
  4. POTASSIUM CHLORIDE [Concomitant]
     Dates: start: 20050507
  5. CALCIUM                                 /N/A/ [Concomitant]
     Dates: start: 20050507
  6. PROPOFOL [Concomitant]
     Dates: start: 20050507
  7. MIDAZOLAM HCL [Concomitant]
     Dates: start: 20050507
  8. VECURONIUM BROMIDE [Concomitant]
     Dates: start: 20050507
  9. LABETALOL HYDROCHLORIDE [Concomitant]
     Indication: INJURY
     Dosage: 4.8 MG ONCE
     Dates: start: 20050507
  10. CEPHALOSPORINS AND RELATED SUBSTANCES [Concomitant]
     Dates: start: 20050507
  11. MANNITOL [Concomitant]
     Dates: start: 20050507

REACTIONS (2)
  - AXILLARY VEIN THROMBOSIS [None]
  - PHLEBOTHROMBOSIS [None]
